FAERS Safety Report 4594065-4 (Version None)
Quarter: 2005Q1

REPORT INFORMATION
  Report Type: 
  Country: None (occurrence: None)
  Receive Date: 20050222
  Receipt Date: 20050211
  Transmission Date: 20050727
  Serious: Yes (Death)
  Sender: FDA-Public Use
  Company Number: 2004-00619

PATIENT
  Age: 66 Year
  Sex: Female
  Weight: 60 kg

DRUGS (4)
  1. VELCADE [Suspect]
     Indication: MULTIPLE MYELOMA
     Dosage: 1.66 MG, INTRAVENOUS
     Route: 042
     Dates: start: 20040601, end: 20040722
  2. LORAZEPAM [Concomitant]
  3. DIPYRONE TAB [Concomitant]
  4. XIPAMIDE [Concomitant]

REACTIONS (7)
  - ARRHYTHMIA [None]
  - BLOOD CREATININE ABNORMAL [None]
  - BLOOD IMMUNOGLOBULIN G [None]
  - HAEMOGLOBIN DECREASED [None]
  - PLATELET COUNT DECREASED [None]
  - SUDDEN CARDIAC DEATH [None]
  - WHITE BLOOD CELL COUNT DECREASED [None]
